FAERS Safety Report 6860995-3 (Version None)
Quarter: 2010Q3

REPORT INFORMATION
  Report Type: 
  Country: None (occurrence: None)
  Receive Date: 20100720
  Receipt Date: 20100709
  Transmission Date: 20110219
  Serious: Yes (Hospitalization)
  Sender: FDA-Public Use
  Company Number: US-JNJFOC-20100704008

PATIENT
  Age: 72 Year
  Sex: Female
  Weight: 65.77 kg

DRUGS (2)
  1. TYLENOL (CAPLET) [Suspect]
     Indication: ARTHRITIS
     Dosage: TAKES 2. 2 TIME PER DAY
  2. TYLENOL (CAPLET) [Suspect]
     Dosage: TAKES 2. 2 TIME PER DAY

REACTIONS (2)
  - MUSCULAR WEAKNESS [None]
  - PRODUCT QUALITY ISSUE [None]
